FAERS Safety Report 25399334 (Version 1)
Quarter: 2025Q2

REPORT INFORMATION
  Report Type: Spontaneous
  Country: JP (occurrence: JP)
  Receive Date: 20250605
  Receipt Date: 20250605
  Transmission Date: 20250716
  Serious: Yes (Hospitalization)
  Sender: Unknown Manufacturer
  Company Number: JP-MTPC-MTPC2025-0010010

PATIENT
  Age: 83 Year
  Sex: Female

DRUGS (2)
  1. EDARAVONE [Suspect]
     Active Substance: EDARAVONE
     Route: 048
  2. EDARAVONE [Suspect]
     Active Substance: EDARAVONE
     Route: 048

REACTIONS (2)
  - Gastrostomy [Unknown]
  - Dysphagia [Unknown]
